FAERS Safety Report 15173049 (Version 2)
Quarter: 2018Q3

REPORT INFORMATION
  Report Type: Report from Study
  Country: US (occurrence: US)
  Receive Date: 20180720
  Receipt Date: 20180820
  Transmission Date: 20181010
  Serious: Yes (Other)
  Sender: FDA-Public Use
  Company Number: US-PFIZER INC-2018187301

PATIENT
  Age: 55 Year
  Sex: Female

DRUGS (1)
  1. IBRANCE [Suspect]
     Active Substance: PALBOCICLIB
     Indication: BREAST CANCER FEMALE
     Dosage: 125 MG, CYCLIC (DAILY/ 3 WEEKS ON 1 WEEK OFF)
     Route: 048
     Dates: start: 20180421

REACTIONS (18)
  - Blood calcium decreased [Unknown]
  - Nausea [Recovering/Resolving]
  - Alopecia [Not Recovered/Not Resolved]
  - Gastric disorder [Not Recovered/Not Resolved]
  - Vomiting [Unknown]
  - Ascites [Unknown]
  - Haemorrhoids [Recovered/Resolved]
  - Joint warmth [Unknown]
  - Abdominal discomfort [Unknown]
  - Constipation [Unknown]
  - Condition aggravated [Unknown]
  - Fatigue [Not Recovered/Not Resolved]
  - Blood thyroid stimulating hormone abnormal [Unknown]
  - Joint swelling [Unknown]
  - Peripheral swelling [Unknown]
  - Diarrhoea [Recovering/Resolving]
  - Feeling hot [Unknown]
  - Abdominal pain [Recovering/Resolving]

NARRATIVE: CASE EVENT DATE: 2018
